FAERS Safety Report 17478849 (Version 3)
Quarter: 2020Q1

REPORT INFORMATION
  Report Type: Spontaneous
  Country: BR (occurrence: BR)
  Receive Date: 20200229
  Receipt Date: 20200327
  Transmission Date: 20200409
  Serious: Yes (Death)
  Sender: FDA-Public Use
  Company Number: NVSC2020BR056773

PATIENT
  Sex: Female

DRUGS (1)
  1. GALVUS MET [Suspect]
     Active Substance: METFORMIN HYDROCHLORIDE\VILDAGLIPTIN
     Indication: PRODUCT USED FOR UNKNOWN INDICATION
     Dosage: MORE THAN FIVE YEARS AGO
     Route: 048

REACTIONS (5)
  - Urinary tract infection [Fatal]
  - Sepsis [Fatal]
  - Dementia [Fatal]
  - Diabetes mellitus [Fatal]
  - Septic shock [Fatal]
